FAERS Safety Report 9573351 (Version 1)
Quarter: 2013Q3

REPORT INFORMATION
  Report Type: Spontaneous
  Country: US (occurrence: None)
  Receive Date: 20130930
  Receipt Date: 20130930
  Transmission Date: 20140515
  Serious: Yes (Other)
  Sender: FDA-Public Use
  Company Number: None

PATIENT
  Age: 66 Year
  Sex: Female
  Weight: 117.48 kg

DRUGS (9)
  1. XOLAIR [Suspect]
     Indication: ASTHMA
     Dosage: CONTINUOUS THERAPY
     Route: 058
  2. SPIRIVA HANDIHALER (TIOTROPIUM BROMIDE MONOHYDRATE) [Concomitant]
  3. ALBUTEROL SULFATE (ALBUTEROL SULFATE) [Concomitant]
  4. ADVAIR DISKUS (FLUTICASONE-SALMETEROL) [Concomitant]
  5. SINGULAIR [Concomitant]
  6. VENTOLIN HFA (ALBUTEROL SULFATE) [Concomitant]
  7. CLARITIN (LORATADINE) [Concomitant]
  8. TRIAMCINOLONE ACETONIDE (TRIAMCINOLONE ACETONIDE) [Concomitant]
  9. PATANOL (OLAPATADINE HCL) [Concomitant]

REACTIONS (3)
  - Feeling hot [None]
  - Throat irritation [None]
  - Anxiety [None]
